FAERS Safety Report 6429251-1 (Version None)
Quarter: 2009Q4

REPORT INFORMATION
  Report Type: 
  Country: None (occurrence: None)
  Receive Date: 20091105
  Receipt Date: 20091028
  Transmission Date: 20100525
  Serious: Yes (Hospitalization)
  Sender: FDA-Public Use
  Company Number: PHHO2009GB13427

PATIENT
  Sex: Female
  Weight: 75.6 kg

DRUGS (2)
  1. ACZ885 ACZ+ [Suspect]
     Indication: CRYOPYRIN ASSOCIATED PERIODIC SYNDROME
     Dosage: 150 MG EVERY 8 WEEKS
     Route: 058
     Dates: start: 20050301, end: 20090918
  2. ACZ885 ACZ+ [Suspect]
     Dosage: UNK

REACTIONS (1)
  - VACCINATION SITE CELLULITIS [None]
